FAERS Safety Report 25600953 (Version 2)
Quarter: 2025Q3

REPORT INFORMATION
  Report Type: Spontaneous
  Country: EU (occurrence: EU)
  Receive Date: 20250724
  Receipt Date: 20250819
  Transmission Date: 20251020
  Serious: Yes (Other)
  Sender: ARGENX BVBA
  Company Number: EU-ARGENX-2025-ARGX-DE009516

PATIENT

DRUGS (1)
  1. VYVGART [Suspect]
     Active Substance: EFGARTIGIMOD ALFA-FCAB
     Indication: Product used for unknown indication
     Route: 058

REACTIONS (2)
  - Intra-abdominal haematoma [Unknown]
  - Skin disorder [Unknown]
